FAERS Safety Report 9267537 (Version 2)
Quarter: 2013Q3

REPORT INFORMATION
  Report Type: Spontaneous
  Country: FR (occurrence: FR)
  Receive Date: 20130502
  Receipt Date: 20130709
  Transmission Date: 20140515
  Serious: Yes (Hospitalization)
  Sender: FDA-Public Use
  Company Number: FR-ASTRAZENECA-2013SE28274

PATIENT
  Age: 27588 Day
  Sex: Male

DRUGS (11)
  1. INEXIUM [Suspect]
     Route: 048
     Dates: start: 20130406, end: 20130411
  2. VOLTARENE EMULGEL [Suspect]
     Indication: LOCALISED OEDEMA
     Route: 003
     Dates: start: 20130406, end: 20130411
  3. ZOLPIDEM (ARROW) [Suspect]
     Indication: INSOMNIA
     Route: 048
     Dates: start: 20130403
  4. FRAGMINE [Concomitant]
     Indication: DEEP VEIN THROMBOSIS
     Route: 058
     Dates: start: 20130403, end: 20130416
  5. DEXERYL [Concomitant]
     Route: 003
     Dates: start: 20130402, end: 20130417
  6. GARDENAL [Concomitant]
  7. TEGRETOL [Concomitant]
  8. URBANYL [Concomitant]
  9. TAHOR [Concomitant]
  10. ARIXTRA [Concomitant]
     Dates: start: 20130331, end: 20130403
  11. DOLIPRANE [Concomitant]
     Dates: start: 20130402

REACTIONS (2)
  - Hypoxia [Recovered/Resolved]
  - Laryngeal oedema [Recovered/Resolved]
